FAERS Safety Report 5939244-6 (Version None)
Quarter: 2008Q4

REPORT INFORMATION
  Report Type: 
  Country: None (occurrence: None)
  Receive Date: 20081103
  Receipt Date: 20081021
  Transmission Date: 20090506
  Serious: Yes (Hospitalization)
  Sender: FDA-Public Use
  Company Number: JP-PFIZER INC-2008081886

PATIENT
  Sex: Female

DRUGS (5)
  1. AMLODIN [Suspect]
     Indication: HYPERTENSION
     Route: 048
     Dates: start: 20080801, end: 20080919
  2. DIOVANE [Concomitant]
     Indication: HYPERTENSION
     Dosage: DAILY DOSE:80MG
     Route: 048
  3. MUCOSTA [Concomitant]
     Indication: GASTRITIS
     Dosage: DAILY DOSE:200MG
     Route: 048
  4. ASPIRIN [Concomitant]
     Indication: HYPERTENSION
     Dosage: DAILY DOSE:100MG
     Route: 048
  5. ASPIRIN [Concomitant]
     Indication: ARTERIOSCLEROSIS CORONARY ARTERY

REACTIONS (3)
  - CONVULSION [None]
  - PYREXIA [None]
  - TREMOR [None]
